FAERS Safety Report 23337451 (Version 1)
Quarter: 2023Q4

REPORT INFORMATION
  Report Type: Spontaneous
  Country: CA (occurrence: CA)
  Receive Date: 20231226
  Receipt Date: 20231226
  Transmission Date: 20240109
  Serious: Yes (Other)
  Sender: FDA-Public Use
  Company Number: None

PATIENT
  Age: 74 Year
  Sex: Female

DRUGS (1)
  1. PACLITAXEL [Suspect]
     Active Substance: PACLITAXEL
     Indication: Breast cancer
     Dosage: LIQUID INTRAVENOUS

REACTIONS (9)
  - Back pain [Unknown]
  - Chest discomfort [Unknown]
  - Dysgeusia [Unknown]
  - Flushing [Unknown]
  - Heart rate irregular [Unknown]
  - Nausea [Unknown]
  - Oxygen saturation decreased [Unknown]
  - Skin discolouration [Unknown]
  - Wheezing [Unknown]
